FAERS Safety Report 7039287-8 (Version None)
Quarter: 2010Q4

REPORT INFORMATION
  Report Type: 
  Country: None (occurrence: None)
  Receive Date: 20101007
  Receipt Date: 20100920
  Transmission Date: 20110411
  Serious: Yes (Death)
  Sender: FDA-Public Use
  Company Number: CV20100507

PATIENT
  Sex: Female

DRUGS (8)
  1. VOLUVEN [Suspect]
     Indication: HYPOTENSION
     Dosage: TRANSPLACENTAL
     Route: 064
     Dates: start: 20100524, end: 20100524
  2. VOLUVEN [Suspect]
     Indication: TACHYCARDIA
     Dosage: TRANSPLACENTAL
     Route: 064
     Dates: start: 20100524, end: 20100524
  3. ADALATE (NIFEDIPINE) (NIFEDIPINE) [Concomitant]
  4. TRACTOCILE (ATOSIBAN) (ATOSIBAN) [Concomitant]
  5. ERYTHROMYCIN [Concomitant]
  6. EPHEDRINE (EPHEDRINE) (EPHEDRINE) [Concomitant]
  7. BETAMETHASONE [Concomitant]
  8. NEOSYNEPHRINE (PHENYLEPHRINE HYDROCHLOIRIDE) (PHENYLEPHRINE HYDROCHLOR [Concomitant]

REACTIONS (3)
  - ACIDOSIS [None]
  - INTRA-UTERINE DEATH [None]
  - MATERNAL DRUGS AFFECTING FOETUS [None]
